FAERS Safety Report 24755029 (Version 2)
Quarter: 2024Q4

REPORT INFORMATION
  Report Type: Report from Study
  Country: JP (occurrence: JP)
  Receive Date: 20241219
  Receipt Date: 20241226
  Transmission Date: 20250115
  Serious: Yes (Hospitalization)
  Sender: EISAI
  Company Number: JP-Eisai-EC-2024-165148

PATIENT
  Age: 73 Year
  Sex: Male

DRUGS (32)
  1. LENVATINIB [Suspect]
     Active Substance: LENVATINIB
     Indication: Thymic carcinoma
     Route: 048
     Dates: start: 20240323, end: 20240412
  2. LENVATINIB [Suspect]
     Active Substance: LENVATINIB
     Route: 048
     Dates: start: 20240425, end: 20240702
  3. LENVATINIB [Suspect]
     Active Substance: LENVATINIB
     Route: 048
     Dates: start: 20240703, end: 20240716
  4. LENVATINIB [Suspect]
     Active Substance: LENVATINIB
     Route: 048
     Dates: start: 20240724, end: 20240804
  5. LENVATINIB [Suspect]
     Active Substance: LENVATINIB
     Route: 048
     Dates: start: 20240813
  6. CARBOPLATIN [Suspect]
     Active Substance: CARBOPLATIN
     Indication: Thymic carcinoma
     Dosage: 175 MG/BODY
     Route: 042
     Dates: start: 20240323, end: 20240611
  7. PACLITAXEL [Suspect]
     Active Substance: PACLITAXEL
     Indication: Thymic carcinoma
     Dosage: 431 MG/BODY
     Route: 042
     Dates: start: 20240323, end: 20240611
  8. PEMBROLIZUMAB [Suspect]
     Active Substance: PEMBROLIZUMAB
     Indication: Thymic carcinoma
     Route: 042
     Dates: start: 20240323, end: 20240425
  9. OLODATEROL HYDROCHLORIDE\TIOTROPIUM BROMIDE MONOHYDRATE [Concomitant]
     Active Substance: OLODATEROL HYDROCHLORIDE\TIOTROPIUM BROMIDE MONOHYDRATE
  10. MIYA-BM [Concomitant]
     Active Substance: CLOSTRIDIUM BUTYRICUM SPORES STRAIN M-55
     Dates: start: 20240326
  11. MIROGABALIN BESYLATE [Concomitant]
     Active Substance: MIROGABALIN BESYLATE
     Dates: start: 20240404
  12. LUBIPROSTONE [Concomitant]
     Active Substance: LUBIPROSTONE
     Dates: start: 20240504
  13. SENNOSIDES [Concomitant]
     Active Substance: SENNOSIDES
     Dates: start: 20240329
  14. HYDROCORTISONE BUTYRATE [Concomitant]
     Active Substance: HYDROCORTISONE BUTYRATE
     Dates: start: 20240326
  15. DIFLUPREDNATE [Concomitant]
     Active Substance: DIFLUPREDNATE
     Dates: start: 20240326
  16. HEPARINOID [Concomitant]
     Dates: start: 20240326
  17. ACETAMINOPHEN [Concomitant]
     Active Substance: ACETAMINOPHEN
     Dates: start: 20240326
  18. LEVOCETIRIZINE [Concomitant]
     Active Substance: LEVOCETIRIZINE
     Dates: start: 20240415
  19. PREDNISOLONE [Concomitant]
     Active Substance: PREDNISOLONE
     Dates: start: 20240424
  20. METOCLOPRAMIDE [Concomitant]
     Active Substance: METOCLOPRAMIDE
     Dates: start: 20240326
  21. LOPERAMIDE HYDROCHLORIDE [Concomitant]
     Active Substance: LOPERAMIDE HYDROCHLORIDE
  22. ZINC ACETATE [Concomitant]
     Active Substance: ZINC ACETATE
     Dates: start: 20240814
  23. ATORVASTATIN [Concomitant]
     Active Substance: ATORVASTATIN
  24. FEBUXOSTAT [Concomitant]
     Active Substance: FEBUXOSTAT
  25. RABEPRAZOLE [Concomitant]
     Active Substance: RABEPRAZOLE
  26. MAGNESIUM OXIDE [Concomitant]
     Active Substance: MAGNESIUM OXIDE
     Dates: start: 20240326
  27. MOSAPRIDE [Concomitant]
     Active Substance: MOSAPRIDE
  28. DEXAMETHASONE [Concomitant]
     Active Substance: DEXAMETHASONE
     Dates: start: 20240924
  29. DOMPERIDONE [Concomitant]
     Active Substance: DOMPERIDONE
     Dates: start: 20241015
  30. LEVOTHYROXINE SODIUM [Concomitant]
     Active Substance: LEVOTHYROXINE SODIUM
     Dates: start: 20241127
  31. AZULENE SOIDUM SULFONATE [Concomitant]
     Dates: start: 20241105
  32. SODIUM PICOSULFATE [Concomitant]
     Active Substance: SODIUM PICOSULFATE
     Dates: start: 20241105

REACTIONS (2)
  - Infusion related reaction [Recovered/Resolved with Sequelae]
  - Stomatitis [Recovered/Resolved]

NARRATIVE: CASE EVENT DATE: 20240425
